FAERS Safety Report 25862533 (Version 2)
Quarter: 2025Q4

REPORT INFORMATION
  Report Type: Spontaneous
  Country: JP (occurrence: JP)
  Receive Date: 20250930
  Receipt Date: 20251009
  Transmission Date: 20260117
  Serious: Yes (Other)
  Sender: ACCORD
  Company Number: JP-MLMSERVICE-20250910-PI640216-00101-1

PATIENT
  Age: 42 Year
  Sex: Male
  Weight: 78.9 kg

DRUGS (18)
  1. CISPLATIN [Suspect]
     Active Substance: CISPLATIN
     Indication: Testicular germ cell tumour mixed
     Dosage: 37 MG PER DAY FOR 5 DAYS PER COURSE, EACH CYCLE LASTING 3 WEEKS; FOUR CYCLES
     Route: 042
  2. ETOPOSIDE [Suspect]
     Active Substance: ETOPOSIDE
     Indication: Testicular germ cell tumour mixed
     Dosage: 180 MG PER DAY FOR 5 DAYS PER COURSE, EACH CYCLE LASTING 3 WEEKS; FOUR CYCLES
     Route: 042
  3. BLEOMYCIN [Suspect]
     Active Substance: BLEOMYCIN SULFATE
     Indication: Testicular germ cell tumour mixed
     Dosage: 30 MG PER COURSE, EACH CYCLE LASTING 3 WEEKS; FOUR CYCLES
  4. CISPLATIN [Suspect]
     Active Substance: CISPLATIN
     Indication: Metastases to lymph nodes
     Dosage: 37 MG PER DAY FOR 5 DAYS PER COURSE, EACH CYCLE LASTING 3 WEEKS; FOUR CYCLES
  5. BLEOMYCIN [Suspect]
     Active Substance: BLEOMYCIN SULFATE
     Indication: Metastases to lymph nodes
     Dosage: 30 MG PER COURSE, EACH CYCLE LASTING 3 WEEKS; FOUR CYCLES
  6. CISPLATIN [Suspect]
     Active Substance: CISPLATIN
     Indication: Testicular yolk sac tumour
     Dosage: 37 MG PER DAY FOR 5 DAYS PER COURSE, EACH CYCLE LASTING 3 WEEKS; FOUR CYCLES
  7. CISPLATIN [Suspect]
     Active Substance: CISPLATIN
     Indication: Testicular embryonal carcinoma
     Dosage: 37 MG PER DAY FOR 5 DAYS PER COURSE, EACH CYCLE LASTING 3 WEEKS; FOUR CYCLES
  8. CISPLATIN [Suspect]
     Active Substance: CISPLATIN
     Indication: Testicular malignant teratoma
     Dosage: 37 MG PER DAY FOR 5 DAYS PER COURSE, EACH CYCLE LASTING 3 WEEKS; FOUR CYCLES
  9. CISPLATIN [Suspect]
     Active Substance: CISPLATIN
     Indication: Testicular choriocarcinoma
     Dosage: 37 MG PER DAY FOR 5 DAYS PER COURSE, EACH CYCLE LASTING 3 WEEKS; FOUR CYCLES
  10. ETOPOSIDE [Suspect]
     Active Substance: ETOPOSIDE
     Indication: Testicular yolk sac tumour
     Dosage: 180 MG PER DAY FOR 5 DAYS PER COURSE, EACH CYCLE LASTING 3 WEEKS; FOUR CYCLES
  11. ETOPOSIDE [Suspect]
     Active Substance: ETOPOSIDE
     Indication: Testicular embryonal carcinoma
     Dosage: 180 MG PER DAY FOR 5 DAYS PER COURSE, EACH CYCLE LASTING 3 WEEKS; FOUR CYCLES
  12. ETOPOSIDE [Suspect]
     Active Substance: ETOPOSIDE
     Indication: Testicular choriocarcinoma
     Dosage: 180 MG PER DAY FOR 5 DAYS PER COURSE, EACH CYCLE LASTING 3 WEEKS; FOUR CYCLES
  13. ETOPOSIDE [Suspect]
     Active Substance: ETOPOSIDE
     Indication: Testicular malignant teratoma
     Dosage: 180 MG PER DAY FOR 5 DAYS PER COURSE, EACH CYCLE LASTING 3 WEEKS; FOUR CYCLES
  14. BLEOMYCIN [Suspect]
     Active Substance: BLEOMYCIN SULFATE
     Indication: Testicular yolk sac tumour
     Dosage: 30 MG PER COURSE, EACH CYCLE LASTING 3 WEEKS; FOUR CYCLES
  15. BLEOMYCIN [Suspect]
     Active Substance: BLEOMYCIN SULFATE
     Indication: Testicular embryonal carcinoma
     Dosage: 30 MG PER COURSE, EACH CYCLE LASTING 3 WEEKS; FOUR CYCLES
  16. BLEOMYCIN [Suspect]
     Active Substance: BLEOMYCIN SULFATE
     Indication: Testicular malignant teratoma
     Dosage: 30 MG PER COURSE, EACH CYCLE LASTING 3 WEEKS; FOUR CYCLES
  17. BLEOMYCIN [Suspect]
     Active Substance: BLEOMYCIN SULFATE
     Indication: Testicular choriocarcinoma
     Dosage: 30 MG PER COURSE, EACH CYCLE LASTING 3 WEEKS; FOUR CYCLES
  18. ETOPOSIDE [Suspect]
     Active Substance: ETOPOSIDE
     Indication: Metastases to lymph nodes
     Dosage: 180 MG PER DAY FOR 5 DAYS PER COURSE, EACH CYCLE LASTING 3 WEEKS; FOUR CYCLES

REACTIONS (1)
  - Myelosuppression [Recovered/Resolved]
